FAERS Safety Report 17444807 (Version 1)
Quarter: 2020Q1

REPORT INFORMATION
  Report Type: Spontaneous
  Country: CZ (occurrence: CZ)
  Receive Date: 20200221
  Receipt Date: 20200221
  Transmission Date: 20200409
  Serious: Yes (Other)
  Sender: FDA-Public Use
  Company Number: CZ-TEVA-2020-CZ-1189082

PATIENT
  Age: 17 Year
  Sex: Female
  Weight: 55 kg

DRUGS (1)
  1. DOXYBENE 200MG [Suspect]
     Active Substance: DOXYCYCLINE
     Dosage: 200 MG ONCE DAILY AFTER MEAL
     Route: 048
     Dates: start: 20200128, end: 20200129

REACTIONS (6)
  - Rash [Recovering/Resolving]
  - Abdominal pain [Recovering/Resolving]
  - Malaise [Recovering/Resolving]
  - Vomiting [Recovering/Resolving]
  - Fatigue [Recovering/Resolving]
  - Asthenia [Recovering/Resolving]

NARRATIVE: CASE EVENT DATE: 20200128
